FAERS Safety Report 9438002 (Version 1)
Quarter: 2013Q3

REPORT INFORMATION
  Report Type: Spontaneous
  Country: US (occurrence: US)
  Receive Date: 20130802
  Receipt Date: 20130802
  Transmission Date: 20140515
  Serious: No
  Sender: FDA-Public Use
  Company Number: US-BRISTOL-MYERS SQUIBB COMPANY-18822320

PATIENT
  Age: 76 Year
  Sex: Male
  Weight: 133.78 kg

DRUGS (6)
  1. COUMADIN [Suspect]
     Dates: start: 20130404, end: 20130411
  2. METFORMIN HCL [Suspect]
  3. BYETTA [Suspect]
  4. ENOXAPARIN [Suspect]
     Dosage: INJ
     Dates: start: 20130404
  5. LANTUS [Suspect]
  6. METOPROLOL [Concomitant]

REACTIONS (2)
  - International normalised ratio increased [Unknown]
  - Blood glucose increased [Unknown]
